FAERS Safety Report 6871728-9 (Version None)
Quarter: 2010Q3

REPORT INFORMATION
  Report Type: 
  Country: None (occurrence: None)
  Receive Date: 20100723
  Receipt Date: 20100714
  Transmission Date: 20110219
  Serious: Yes (Hospitalization)
  Sender: FDA-Public Use
  Company Number: A0870443A

PATIENT
  Age: 72 Year
  Sex: Male

DRUGS (7)
  1. AVANDIA [Suspect]
     Route: 048
     Dates: start: 20010821, end: 20040101
  2. ZOCOR [Concomitant]
  3. MONOPRIL [Concomitant]
  4. PRAZOSIN [Concomitant]
  5. FLOMAX [Concomitant]
  6. VOLMAX [Concomitant]
  7. JEVITY [Concomitant]

REACTIONS (3)
  - APHASIA [None]
  - CEREBROVASCULAR ACCIDENT [None]
  - ILL-DEFINED DISORDER [None]
